FAERS Safety Report 20810463 (Version 1)
Quarter: 2022Q2

REPORT INFORMATION
  Report Type: Spontaneous
  Country: US (occurrence: US)
  Receive Date: 20220510
  Receipt Date: 20220510
  Transmission Date: 20220721
  Serious: Yes (Other)
  Sender: FDA-Public Use
  Company Number: US-TEVA-2022-US-2035172

PATIENT
  Sex: Male

DRUGS (2)
  1. AUSTEDO [Suspect]
     Active Substance: DEUTETRABENAZINE
     Indication: Huntington^s disease
     Dosage: 36 MILLIGRAM DAILY; DOSE WAS TITRATED TO 18MG BI
     Route: 065
  2. AUSTEDO [Suspect]
     Active Substance: DEUTETRABENAZINE
     Dosage: 18 MILLIGRAM DAILY;
     Route: 065

REACTIONS (7)
  - Chorea [Unknown]
  - Feeling cold [Unknown]
  - Dyspnoea [Unknown]
  - Insomnia [Unknown]
  - Hyperhidrosis [Unknown]
  - Rash [Unknown]
  - Skin irritation [Unknown]
